FAERS Safety Report 20953539 (Version 1)
Quarter: 2022Q2

REPORT INFORMATION
  Report Type: Other
  Country: None (occurrence: NL)
  Receive Date: 20220613
  Receipt Date: 20220613
  Transmission Date: 20220721
  Serious: Yes (Hospitalization)
  Sender: FDA-Public Use
  Company Number: NL-ALSI-2022000138

PATIENT
  Age: 40 Year
  Sex: Male

DRUGS (1)
  1. NITROUS OXIDE [Suspect]
     Active Substance: NITROUS OXIDE
     Indication: Drug abuse
     Route: 055

REACTIONS (2)
  - Acute myocardial infarction [Recovering/Resolving]
  - Arterial occlusive disease [Recovering/Resolving]
